FAERS Safety Report 8067833-4 (Version None)
Quarter: 2012Q1

REPORT INFORMATION
  Report Type: 
  Country: None (occurrence: None)
  Receive Date: 20120124
  Receipt Date: 20120110
  Transmission Date: 20120608
  Serious: Yes (Other)
  Sender: FDA-Public Use
  Company Number: US-VALEANT-2011VX003558

PATIENT
  Age: 36 Year
  Sex: Female
  Weight: 83 kg

DRUGS (6)
  1. ZONEGRAN [Concomitant]
     Route: 065
  2. TEGRETOL [Concomitant]
     Route: 048
  3. LAMICTAL [Concomitant]
     Route: 065
  4. DIASTAT [Suspect]
     Route: 054
  5. LYRICA [Concomitant]
     Route: 065
  6. VIMPAT [Concomitant]
     Route: 048

REACTIONS (5)
  - CONDITION AGGRAVATED [None]
  - CONVULSION [None]
  - INCORRECT ROUTE OF DRUG ADMINISTRATION [None]
  - VULVOVAGINAL PAIN [None]
  - THERAPEUTIC RESPONSE DELAYED [None]
